FAERS Safety Report 18277769 (Version 1)
Quarter: 2020Q3

REPORT INFORMATION
  Report Type: Spontaneous
  Country: TR (occurrence: TR)
  Receive Date: 20200917
  Receipt Date: 20200917
  Transmission Date: 20201103
  Serious: No
  Sender: FDA-Public Use
  Company Number: None

PATIENT
  Age: 24 Year
  Sex: Female
  Weight: 51 kg

DRUGS (2)
  1. N/A [Concomitant]
     Active Substance: UNSPECIFIED INGREDIENT
  2. SENSODYNE RAPID RELIEF [Suspect]
     Active Substance: STANNOUS FLUORIDE
     Indication: MUCOSAL DISORDER
     Dosage: ?          OTHER FREQUENCY:1 TIME;OTHER ROUTE:GINGIVAL?
     Dates: start: 20200914, end: 20200914

REACTIONS (3)
  - Oral discomfort [None]
  - Erythema [None]
  - Dysphagia [None]

NARRATIVE: CASE EVENT DATE: 20200914
